FAERS Safety Report 8371659-1 (Version None)
Quarter: 2012Q2

REPORT INFORMATION
  Report Type: 
  Country: None (occurrence: None)
  Receive Date: 20120518
  Receipt Date: 20120511
  Transmission Date: 20120825
  Serious: Yes (Hospitalization)
  Sender: FDA-Public Use
  Company Number: US-PFIZER INC-2012116520

PATIENT
  Sex: Female
  Weight: 109 kg

DRUGS (4)
  1. AMBRISENTAN [Suspect]
     Indication: PULMONARY ARTERIAL HYPERTENSION
     Dosage: 50 MG, UNK
     Route: 048
     Dates: start: 20120406
  2. REVATIO [Suspect]
     Dosage: UNK
  3. AMBRISENTAN [Suspect]
     Dosage: 5 MG, UNK
     Dates: start: 20120406
  4. TYVASO [Suspect]
     Indication: PULMONARY ARTERIAL HYPERTENSION
     Dosage: UNK
     Dates: start: 20110729

REACTIONS (2)
  - FLUID OVERLOAD [None]
  - FLUID RETENTION [None]
